FAERS Safety Report 20125088 (Version 3)
Quarter: 2022Q1

REPORT INFORMATION
  Report Type: Spontaneous
  Country: AU (occurrence: AU)
  Receive Date: 20211129
  Receipt Date: 20220119
  Transmission Date: 20220423
  Serious: Yes (Other)
  Sender: FDA-Public Use
  Company Number: AU-PFIZER INC-202101597985

PATIENT
  Age: 34 Year
  Sex: Female

DRUGS (4)
  1. OXALIPLATIN [Suspect]
     Active Substance: OXALIPLATIN
     Indication: Colorectal cancer
     Dosage: UNK, CYCLIC
     Dates: start: 202003
  2. FLUOROURACIL [Concomitant]
     Active Substance: FLUOROURACIL
     Indication: Colorectal cancer
     Dosage: UNK, CYCLIC
     Dates: start: 202003
  3. IRINOTECAN HYDROCHLORIDE [Concomitant]
     Active Substance: IRINOTECAN HYDROCHLORIDE
     Indication: Colorectal cancer
     Dosage: UNK, CYCLIC
     Dates: start: 202003
  4. LEUCOVORIN CALCIUM [Concomitant]
     Active Substance: LEUCOVORIN CALCIUM
     Indication: Colorectal cancer
     Dosage: UNK, CYCLIC
     Dates: start: 202003

REACTIONS (1)
  - Neuropathy peripheral [Unknown]

NARRATIVE: CASE EVENT DATE: 20200101
